FAERS Safety Report 12503287 (Version 1)
Quarter: 2016Q2

REPORT INFORMATION
  Report Type: Spontaneous
  Country: US (occurrence: US)
  Receive Date: 20160628
  Receipt Date: 20160628
  Transmission Date: 20160815
  Serious: No
  Sender: FDA-Public Use
  Company Number: US-FERRINGPH-2016FE00018

PATIENT
  Age: 32 Year
  Sex: Female

DRUGS (2)
  1. BRAVELLE [Suspect]
     Active Substance: FOLLITROPIN\UROFOLLITROPIN
     Indication: IN VITRO FERTILISATION
     Dosage: UNK
     Dates: start: 20140730
  2. BRAVELLE [Suspect]
     Active Substance: FOLLITROPIN\UROFOLLITROPIN
     Dosage: UNK
     Dates: start: 20140730

REACTIONS (1)
  - Drug ineffective [Unknown]
